FAERS Safety Report 7737476-8 (Version None)
Quarter: 2011Q3

REPORT INFORMATION
  Report Type: 
  Country: None (occurrence: None)
  Receive Date: 20110908
  Receipt Date: 20110901
  Transmission Date: 20111222
  Serious: Yes (Death)
  Sender: FDA-Public Use
  Company Number: US-GLAXOSMITHKLINE-A0943191A

PATIENT
  Age: 70 Year
  Sex: Female

DRUGS (5)
  1. SPIRIVA [Concomitant]
  2. PULMICORT [Concomitant]
  3. THEOPHYLLINE [Concomitant]
  4. ALBUTEROL SULFATE AUTOHALER [Concomitant]
  5. ADVAIR DISKUS 100/50 [Suspect]
     Indication: CHRONIC OBSTRUCTIVE PULMONARY DISEASE
     Dosage: 1PUFF TWICE PER DAY
     Route: 055

REACTIONS (1)
  - CHRONIC OBSTRUCTIVE PULMONARY DISEASE [None]
